FAERS Safety Report 7351406-2 (Version None)
Quarter: 2011Q1

REPORT INFORMATION
  Report Type: 
  Country: None (occurrence: None)
  Receive Date: 20110314
  Receipt Date: 20110307
  Transmission Date: 20110831
  Serious: Yes (Hospitalization)
  Sender: FDA-Public Use
  Company Number: US-US-EMD SERONO, INC.-233844K07USA

PATIENT
  Sex: Female

DRUGS (5)
  1. METHOTREXATE [Concomitant]
     Dates: end: 20081105
  2. SOLU-MEDROL [Suspect]
     Route: 042
     Dates: start: 20070314, end: 20070319
  3. PREDNISONE TAPER [Concomitant]
     Dates: start: 20070319, end: 20070101
  4. REBIF [Suspect]
     Indication: MULTIPLE SCLEROSIS
     Route: 058
     Dates: start: 20070307
  5. GEODON [Concomitant]
     Dates: start: 20100901

REACTIONS (5)
  - BIPOLAR DISORDER [None]
  - PSYCHOTIC DISORDER [None]
  - SUICIDAL IDEATION [None]
  - COGNITIVE DISORDER [None]
  - DIPLOPIA [None]
